FAERS Safety Report 6555498-X (Version None)
Quarter: 2010Q1

REPORT INFORMATION
  Report Type: 
  Country: None (occurrence: None)
  Receive Date: 20100128
  Receipt Date: 20100122
  Transmission Date: 20100710
  Serious: Yes (Hospitalization)
  Sender: FDA-Public Use
  Company Number: DE-ROCHE-646389

PATIENT
  Sex: Female
  Weight: 73 kg

DRUGS (19)
  1. METHOXY POLYETHYLENE GLYCOL-EPOETIN BETA [Suspect]
     Dosage: THERAPY TEMPORARILY INTERRUPTED. DOSE FORM: SYR
     Route: 058
     Dates: start: 20081203
  2. ENALAPRIL MALEATE [Concomitant]
     Dosage: TDD: 40
     Dates: start: 20020116
  3. ENALAPRIL MALEATE [Concomitant]
     Dosage: TDD 40
     Dates: start: 20050824
  4. VERAPAMIL [Concomitant]
     Dosage: TDD: 160
     Dates: start: 20050125
  5. VERAPAMIL [Concomitant]
     Dosage: TDD 120
     Dates: start: 20050916
  6. PANTOPRAZOLE [Concomitant]
     Dosage: TDD 40
     Dates: start: 20051025
  7. INSIDON [Concomitant]
     Dosage: TDD: 25
     Dates: start: 20060217
  8. INSIDON [Concomitant]
     Dosage: TDD 25
     Dates: start: 20070828
  9. CELLCEPT [Concomitant]
     Dosage: TDD: 500
     Dates: start: 20070730
  10. CELLCEPT [Concomitant]
     Dosage: TDD 500
     Dates: start: 20071211
  11. FURO [Concomitant]
     Dosage: TDD:1500
     Dates: start: 20070705
  12. FURO [Concomitant]
     Dosage: TDD 1500
     Dates: start: 20080822
  13. PROGRAF [Concomitant]
     Dosage: TDD:2
     Dates: start: 20071213
  14. PROGRAF [Concomitant]
     Dosage: TDD 2
     Dates: start: 20080123
  15. GLUCOBAY [Concomitant]
     Dosage: TDD 150
     Dates: start: 20080414
  16. CATAPRESAN [Concomitant]
     Dosage: TDD: 425
     Dates: start: 20080829
  17. KRAUTERBLUT [Concomitant]
     Dosage: TDD 2G/S
     Dates: start: 20070614
  18. VIT C [Concomitant]
     Dosage: TDD: 2X.
     Dates: start: 20090506
  19. BENZBROMARON [Concomitant]
     Dosage: TDD:100
     Dates: start: 20090306

REACTIONS (1)
  - PERICARDIAL EFFUSION [None]
